FAERS Safety Report 7866642-6 (Version None)
Quarter: 2011Q4

REPORT INFORMATION
  Report Type: 
  Country: None (occurrence: None)
  Receive Date: 20111028
  Receipt Date: 20110719
  Transmission Date: 20120403
  Serious: No
  Sender: FDA-Public Use
  Company Number: US-GLAXOSMITHKLINE-A0937338A

PATIENT
  Sex: Male

DRUGS (7)
  1. ADVAIR DISKUS 100/50 [Suspect]
     Indication: DYSPNOEA
     Dosage: 1PUFF TWICE PER DAY
     Route: 055
  2. METOPROLOL TARTRATE [Concomitant]
  3. LASIX [Concomitant]
  4. POTASSIUM [Concomitant]
  5. THEOPHYLLINE [Concomitant]
  6. MULTAQ [Concomitant]
  7. GABAPENTIN [Concomitant]

REACTIONS (3)
  - DRUG INEFFECTIVE [None]
  - BRONCHIAL DISORDER [None]
  - DYSPNOEA [None]
